FAERS Safety Report 9263338 (Version 1)
Quarter: 2013Q2

REPORT INFORMATION
  Report Type: Spontaneous
  Country: US (occurrence: US)
  Receive Date: 20130430
  Receipt Date: 20130430
  Transmission Date: 20140414
  Serious: No
  Sender: FDA-Public Use
  Company Number: US-ABBOTT-12P-163-1027008-00

PATIENT
  Age: 2 Year
  Sex: Female
  Weight: 11.8 kg

DRUGS (1)
  1. CREON [Suspect]
     Indication: PRODUCT USED FOR UNKNOWN INDICATION
     Dosage: TWO 24,000 CREON CAPSULES
     Dates: start: 20121226, end: 20121226

REACTIONS (1)
  - Wrong drug administered [Not Recovered/Not Resolved]
